FAERS Safety Report 6430433-3 (Version None)
Quarter: 2009Q4

REPORT INFORMATION
  Report Type: 
  Country: None (occurrence: None)
  Receive Date: 20091106
  Receipt Date: 20091026
  Transmission Date: 20100525
  Serious: Yes (Other)
  Sender: FDA-Public Use
  Company Number: PHEH2009US07437

PATIENT
  Age: 28 Year
  Sex: Female
  Weight: 62.6 kg

DRUGS (7)
  1. TEGRETOL [Suspect]
     Indication: CONVULSION
     Dosage: 200 MG, UNK
     Dates: start: 19840101, end: 19910101
  2. TEGRETOL [Suspect]
     Dosage: NO TREATMENT
  3. TEGRETOL [Suspect]
     Dosage: 200 MG, UNK
     Dates: start: 19910101
  4. TEGRETOL [Suspect]
     Dosage: 400 MG, UNK
  5. CARBAMAZEPINE [Suspect]
     Dosage: 200 MG, QID
     Route: 048
     Dates: start: 20090529
  6. CARBAMAZEPINE [Suspect]
     Dosage: UNK
     Dates: start: 19910101, end: 19910101
  7. VALIUM [Concomitant]
     Indication: EPILEPTIC AURA
     Dosage: 2MG 1-2 TABS PRN AURA
     Route: 048

REACTIONS (4)
  - CONVULSION [None]
  - EPILEPTIC AURA [None]
  - SENSORY DISTURBANCE [None]
  - SPEECH DISORDER [None]
